FAERS Safety Report 18559285 (Version 1)
Quarter: 2020Q4

REPORT INFORMATION
  Report Type: Spontaneous
  Country: US (occurrence: US)
  Receive Date: 20201127
  Receipt Date: 20201127
  Transmission Date: 20210114
  Serious: No
  Sender: FDA-Public Use
  Company Number: None

PATIENT
  Age: 40 Year
  Sex: Female

DRUGS (4)
  1. HYDROCODONE/APAP 5/325 [Concomitant]
     Active Substance: ACETAMINOPHEN\HYDROCODONE
     Dates: start: 20200303
  2. LEVOTHYROXINE  125 MCG [Concomitant]
     Active Substance: LEVOTHYROXINE SODIUM
     Dates: start: 20200304
  3. BENLYSTA [Suspect]
     Active Substance: BELIMUMAB
     Indication: SKIN DISORDER
     Dosage: ?          OTHER FREQUENCY:ONCE WEEKLY;?
     Route: 058
     Dates: start: 20201001
  4. PREDNISONE 1MG [Concomitant]
     Dates: start: 20200604

REACTIONS (2)
  - Injection site reaction [None]
  - Pruritus [None]

NARRATIVE: CASE EVENT DATE: 20201127
